FAERS Safety Report 11184305 (Version 1)
Quarter: 2015Q2

REPORT INFORMATION
  Report Type: Spontaneous
  Country: IT (occurrence: None)
  Receive Date: 20150610
  Receipt Date: 20150610
  Transmission Date: 20150821
  Serious: Yes (Other)
  Sender: FDA-Public Use
  Company Number: 2015HINLIT0479

PATIENT
  Age: 44 Year
  Sex: Female

DRUGS (4)
  1. LITHIUM. [Suspect]
     Active Substance: LITHIUM
     Indication: BIPOLAR II DISORDER
  2. ESCITALOPRAM [Suspect]
     Active Substance: ESCITALOPRAM OXALATE
     Indication: BIPOLAR II DISORDER
  3. VALPROATE [Concomitant]
     Active Substance: VALPROIC ACID
  4. INDOMETHACIN+CAFFEINE+PROCHLORPERAZINE (INDOMETHACIN+CAFFEINE+PROCHLORPERAZINE) [Concomitant]

REACTIONS (11)
  - Disease recurrence [None]
  - Neck pain [None]
  - Bruxism [None]
  - Migraine [None]
  - Headache [None]
  - Hypomania [None]
  - Depression [None]
  - Drug ineffective [None]
  - Musculoskeletal pain [None]
  - Therapy change [None]
  - Pain in jaw [None]
